FAERS Safety Report 9189184 (Version 1)
Quarter: 2013Q1

REPORT INFORMATION
  Report Type: Spontaneous
  Country: CO (occurrence: CO)
  Receive Date: 20130326
  Receipt Date: 20130326
  Transmission Date: 20140127
  Serious: Yes (Other)
  Sender: FDA-Public Use
  Company Number: CO-009507513-1303COL011910

PATIENT
  Age: 61 Year
  Sex: Male

DRUGS (5)
  1. PEG-INTRON [Suspect]
     Indication: HEPATITIS C
     Dosage: UNK
     Route: 059
     Dates: start: 20130321
  2. PEG-INTRON [Suspect]
     Dosage: 100 MICROGRAM, QW
     Route: 059
     Dates: start: 2013
  3. REBETOL [Suspect]
     Indication: HEPATITIS C
     Dosage: UNK
     Dates: start: 20130321
  4. REBETOL [Suspect]
     Dosage: 800 MG/DAY, UNK
     Dates: start: 2013
  5. VICTRELIS [Suspect]
     Indication: HEPATITIS C
     Dosage: UNK
     Dates: start: 20130321

REACTIONS (3)
  - Pancytopenia [Unknown]
  - Neutropenia [Unknown]
  - Thrombocytopenia [Unknown]
